FAERS Safety Report 18284223 (Version 1)
Quarter: 2020Q3

REPORT INFORMATION
  Report Type: Spontaneous
  Country: US (occurrence: US)
  Receive Date: 20200918
  Receipt Date: 20200918
  Transmission Date: 20201103
  Serious: Yes (Other)
  Sender: FDA-Public Use
  Company Number: US-IPCA LABORATORIES LIMITED-IPC-2020-US-003059

PATIENT

DRUGS (26)
  1. CANNABIDIOL [Interacting]
     Active Substance: CANNABIDIOL
     Indication: PAIN
     Dosage: 0.1 MILLIGRAM PER MILLILITRE
     Route: 060
     Dates: start: 20191223
  2. ATORVASTATIN [Concomitant]
     Active Substance: ATORVASTATIN
     Indication: PRODUCT USED FOR UNKNOWN INDICATION
     Dosage: 40 MILLIGRAM (DAILY)
     Route: 065
  3. 9?TETRAHYDROCANNABINOL [Interacting]
     Active Substance: DRONABINOL
     Indication: PAIN
     Dosage: UNK
     Route: 060
  4. 9?TETRAHYDROCANNABINOL [Interacting]
     Active Substance: DRONABINOL
     Dosage: 4.9 MILLIGRAM PER MILLILITRE, TID (0.5 ML)
     Route: 060
  5. 9?TETRAHYDROCANNABINOL [Interacting]
     Active Substance: DRONABINOL
     Dosage: 4.9 MILLIGRAM PER MILLILITRE (30 ML)
     Route: 060
     Dates: start: 20200125
  6. METFORMIN [Concomitant]
     Active Substance: METFORMIN HYDROCHLORIDE
     Indication: PRODUCT USED FOR UNKNOWN INDICATION
     Dosage: 850 MILLIGRAM, BID
     Route: 065
  7. OMEPRAZOLE. [Concomitant]
     Active Substance: OMEPRAZOLE
     Indication: PRODUCT USED FOR UNKNOWN INDICATION
     Dosage: 20 MILLIGRAM (DAILY)
     Route: 065
  8. LISINOPRIL. [Concomitant]
     Active Substance: LISINOPRIL
     Indication: PRODUCT USED FOR UNKNOWN INDICATION
     Dosage: 20 MILLIGRAMV(DAILY)
     Route: 065
  9. ASPIRIN. [Concomitant]
     Active Substance: ASPIRIN
     Indication: PRODUCT USED FOR UNKNOWN INDICATION
     Dosage: 81 MILLIGRAM (DAILY)
     Route: 065
  10. WARFARIN [Interacting]
     Active Substance: WARFARIN
     Dosage: 7.5 MILLIGRAM (ALTERNATE)
     Route: 065
  11. CANNABIDIOL [Interacting]
     Active Substance: CANNABIDIOL
     Dosage: 0.1 MILLIGRAM PER MILLILITRE
     Route: 060
     Dates: start: 20200125
  12. FAMOTIDINE. [Concomitant]
     Active Substance: FAMOTIDINE
     Indication: PRODUCT USED FOR UNKNOWN INDICATION
     Dosage: 20 MILLIGRAM, BID
     Route: 065
  13. GLIPIZIDE. [Concomitant]
     Active Substance: GLIPIZIDE
     Indication: PRODUCT USED FOR UNKNOWN INDICATION
     Dosage: 10 MILLIGRAM, BID
     Route: 065
  14. IBUPROFEN. [Concomitant]
     Active Substance: IBUPROFEN
     Indication: ARTHRALGIA
     Dosage: 200 MILLIGRAM, PRN
     Route: 065
  15. 9?TETRAHYDROCANNABINOL [Interacting]
     Active Substance: DRONABINOL
     Dosage: 4.9 MILLIGRAM PER MILLILITRE, TID (0.5 ML)
     Route: 060
  16. 9?TETRAHYDROCANNABINOL [Interacting]
     Active Substance: DRONABINOL
     Indication: PAIN
     Dosage: 4.9 MILLIGRAM PER MILLILITRE (30 ML)
     Route: 060
     Dates: start: 20191223
  17. CANNABIDIOL [Interacting]
     Active Substance: CANNABIDIOL
     Dosage: 5 MILLIEQUIVALENT PER DECILITRE, BID
     Route: 060
  18. FLUOXETINE [Concomitant]
     Active Substance: FLUOXETINE HYDROCHLORIDE
     Indication: PRODUCT USED FOR UNKNOWN INDICATION
     Dosage: 20 MILLIGRAM, BID
     Route: 065
  19. ATENOLOL. [Concomitant]
     Active Substance: ATENOLOL
     Indication: PRODUCT USED FOR UNKNOWN INDICATION
     Dosage: 50 MILLIGRAM (DAILY)
     Route: 065
  20. DOCUSATE [Concomitant]
     Active Substance: DOCUSATE
     Indication: PRODUCT USED FOR UNKNOWN INDICATION
     Dosage: 100 MILLIGRAM (UP TO 3 TIMES)
     Route: 065
  21. MULTIVITAMIN [Concomitant]
     Active Substance: VITAMINS
     Indication: PRODUCT USED FOR UNKNOWN INDICATION
     Dosage: UNK (DAILY)
     Route: 065
  22. WARFARIN [Suspect]
     Active Substance: WARFARIN
     Indication: EMBOLISM VENOUS
     Dosage: 6 MILLIGRAM (ALTERNATE)
     Route: 065
  23. 9?TETRAHYDROCANNABINOL [Interacting]
     Active Substance: DRONABINOL
     Dosage: 4.9 MILLIGRAM PER MILLILITRE (30 ML)
     Route: 060
     Dates: start: 20200202
  24. CANNABIDIOL [Interacting]
     Active Substance: CANNABIDIOL
     Dosage: 0.1 MILLIGRAM PER MILLILITRE
     Route: 060
     Dates: start: 20200202
  25. NORTRIPTYLINE [Concomitant]
     Active Substance: NORTRIPTYLINE
     Indication: PRODUCT USED FOR UNKNOWN INDICATION
     Dosage: 75 MILLIGRAM (DAILY)
     Route: 065
  26. VITAMIN E SUPPLEMENT [Concomitant]
     Indication: PRODUCT USED FOR UNKNOWN INDICATION
     Dosage: UNK (DAILY)
     Route: 065

REACTIONS (5)
  - Dry mouth [Recovered/Resolved]
  - Product administration error [Unknown]
  - Anticoagulation drug level above therapeutic [Recovered/Resolved]
  - Drug interaction [Unknown]
  - Dizziness [Recovered/Resolved]
